FAERS Safety Report 7299285-6 (Version None)
Quarter: 2011Q1

REPORT INFORMATION
  Report Type: 
  Country: None (occurrence: None)
  Receive Date: 20110217
  Receipt Date: 20110204
  Transmission Date: 20110831
  Serious: Yes (Hospitalization)
  Sender: FDA-Public Use
  Company Number: IT-ELI_LILLY_AND_COMPANY-IT201102001131

PATIENT
  Sex: Male

DRUGS (4)
  1. DOBETIN [Concomitant]
  2. CARBOPLATIN [Concomitant]
     Indication: LUNG NEOPLASM MALIGNANT
     Dosage: 210 MG, PER CYCLE
     Dates: start: 20101111
  3. FOLIC ACID [Concomitant]
  4. ALIMTA [Suspect]
     Indication: LUNG NEOPLASM MALIGNANT
     Dosage: 750 MG, PER CYCLE
     Route: 042
     Dates: start: 20101111

REACTIONS (2)
  - ISCHAEMIC STROKE [None]
  - PANCYTOPENIA [None]
